FAERS Safety Report 4702568-4 (Version None)
Quarter: 2005Q2

REPORT INFORMATION
  Report Type: 
  Country: None (occurrence: None)
  Receive Date: 20050629
  Receipt Date: 20050615
  Transmission Date: 20051028
  Serious: Yes (Other)
  Sender: FDA-Public Use
  Company Number: FRWYE747215JUN05

PATIENT
  Age: 41 Year
  Sex: Male

DRUGS (1)
  1. ENBREL [Suspect]
     Indication: ANKYLOSING SPONDYLITIS
     Dosage: UNKNOWN
     Route: 058
     Dates: start: 20040101

REACTIONS (7)
  - BLOOD ALBUMIN DECREASED [None]
  - C-REACTIVE PROTEIN INCREASED [None]
  - DRUG EFFECT DECREASED [None]
  - HYPERGAMMAGLOBULINAEMIA [None]
  - INFLAMMATION [None]
  - MULTIPLE MYELOMA [None]
  - PROTEIN TOTAL INCREASED [None]
